FAERS Safety Report 21794808 (Version 3)
Quarter: 2024Q1

REPORT INFORMATION
  Report Type: Spontaneous
  Country: US (occurrence: US)
  Receive Date: 20221229
  Receipt Date: 20240229
  Transmission Date: 20240409
  Serious: Yes (Other)
  Sender: FDA-Public Use
  Company Number: US-PFIZER INC-PV202200128700

PATIENT
  Age: 79 Year
  Sex: Female
  Weight: 74.84 kg

DRUGS (2)
  1. XELJANZ [Suspect]
     Active Substance: TOFACITINIB CITRATE
     Indication: Rheumatoid arthritis
     Dosage: 5 MG TAKE 1 TABLET BY MOUTH EVERY DAY
     Route: 048
  2. XELJANZ [Suspect]
     Active Substance: TOFACITINIB CITRATE
     Indication: Osteoarthritis

REACTIONS (11)
  - Chronic kidney disease [Unknown]
  - Malaise [Unknown]
  - Pain in extremity [Unknown]
  - Arthralgia [Unknown]
  - Musculoskeletal stiffness [Unknown]
  - Myalgia [Unknown]
  - Muscular weakness [Unknown]
  - Dizziness [Unknown]
  - Spinal osteoarthritis [Unknown]
  - Vertebral foraminal stenosis [Unknown]
  - Neck pain [Unknown]
